FAERS Safety Report 4519941-X (Version None)
Quarter: 2004Q4

REPORT INFORMATION
  Report Type: 
  Country: None (occurrence: None)
  Receive Date: 20041207
  Receipt Date: 20041130
  Transmission Date: 20050328
  Serious: Yes (Hospitalization)
  Sender: FDA-Public Use
  Company Number: AU-ROCHE-387814

PATIENT
  Age: 76 Year
  Sex: Female
  Weight: 52 kg

DRUGS (7)
  1. XELODA [Suspect]
     Indication: COLON CANCER
     Route: 048
     Dates: start: 20040618, end: 20040825
  2. CLEXANE [Suspect]
     Route: 058
     Dates: start: 20040618
  3. OXYCONTIN [Concomitant]
     Indication: PAIN
     Route: 048
  4. OXYNORM [Concomitant]
     Indication: PAIN
     Dosage: PRN.
  5. DIAZEPAM [Concomitant]
     Dosage: PRN.
     Route: 048
  6. TEMAZEPAM [Concomitant]
  7. OXALIPLATIN [Concomitant]
     Indication: COLON CANCER

REACTIONS (3)
  - ASCITES [None]
  - PORTAL HYPERTENSION [None]
  - VENOOCCLUSIVE LIVER DISEASE [None]
